FAERS Safety Report 6793164-6 (Version None)
Quarter: 2010Q2

REPORT INFORMATION
  Report Type: 
  Country: None (occurrence: None)
  Receive Date: 20100624
  Receipt Date: 20090630
  Transmission Date: 20101027
  Serious: Yes (Death)
  Sender: FDA-Public Use
  Company Number: US-MYLANLABS-2009S1011228

PATIENT
  Age: 43 Year
  Sex: Female

DRUGS (13)
  1. CLOZAPINE [Suspect]
     Indication: SCHIZOPHRENIA
     Route: 048
     Dates: start: 20000801
  2. ABILIFY [Concomitant]
  3. BUSPAR [Concomitant]
     Route: 048
  4. FISH OIL [Concomitant]
  5. CLARITIN /00917501/ [Concomitant]
  6. NORVASC [Concomitant]
  7. INDERAL [Concomitant]
  8. ASPIRIN [Concomitant]
  9. LOPID [Concomitant]
  10. MULTI-VITAMIN [Concomitant]
  11. LISINOPRIL [Concomitant]
  12. DEPAKOTE [Concomitant]
  13. CELEXA [Concomitant]

REACTIONS (1)
  - DEATH [None]
